FAERS Safety Report 10982692 (Version 1)
Quarter: 2015Q2

REPORT INFORMATION
  Report Type: Spontaneous
  Country: US (occurrence: None)
  Receive Date: 20150402
  Receipt Date: 20150402
  Transmission Date: 20150821
  Serious: Yes (Hospitalization)
  Sender: FDA-Public Use
  Company Number: None

PATIENT
  Age: 62 Year
  Sex: Male
  Weight: 81.1 kg

DRUGS (2)
  1. PRAZOSIN [Suspect]
     Active Substance: PRAZOSIN
     Indication: POST-TRAUMATIC STRESS DISORDER
     Dosage: AT BEDTIME
     Route: 048
     Dates: start: 20130425, end: 20150219
  2. TRAZODONE [Suspect]
     Active Substance: TRAZODONE HYDROCHLORIDE
     Indication: INSOMNIA
     Dosage: AT BEDTIME
     Route: 048
     Dates: start: 20140828, end: 20150219

REACTIONS (2)
  - Syncope [None]
  - Orthostatic hypotension [None]

NARRATIVE: CASE EVENT DATE: 20150218
